FAERS Safety Report 4991327-3 (Version None)
Quarter: 2006Q2

REPORT INFORMATION
  Report Type: 
  Country: None (occurrence: None)
  Receive Date: 20060428
  Receipt Date: 20060419
  Transmission Date: 20061013
  Serious: Yes (Hospitalization, Other)
  Sender: FDA-Public Use
  Company Number: 163-20785-06040506

PATIENT
  Age: 82 Year
  Sex: Male

DRUGS (10)
  1. THALOMID [Suspect]
     Indication: MYELODYSPLASTIC SYNDROME
     Dosage: SEE IMAGE
     Route: 048
     Dates: start: 20060210, end: 20060301
  2. THALOMID [Suspect]
     Indication: MYELODYSPLASTIC SYNDROME
     Dosage: SEE IMAGE
     Route: 048
     Dates: start: 20060401
  3. ALBUTEROL [Concomitant]
  4. PREDNISONE TAB [Concomitant]
  5. FLOVENT [Concomitant]
  6. HYDROCHLOROTHIAZIDE [Concomitant]
  7. ATENOLOL [Concomitant]
  8. SEREVENT [Concomitant]
  9. ASPIRIN [Concomitant]
  10. IMDUR (ISOSORIDE MONONITRATE) [Concomitant]

REACTIONS (4)
  - CORONARY ARTERY DISEASE [None]
  - DIZZINESS [None]
  - DYSPNOEA EXERTIONAL [None]
  - FATIGUE [None]
